FAERS Safety Report 7916421-6 (Version None)
Quarter: 2011Q4

REPORT INFORMATION
  Report Type: 
  Country: None (occurrence: None)
  Receive Date: 20111116
  Receipt Date: 20111111
  Transmission Date: 20120403
  Serious: Yes (Other)
  Sender: FDA-Public Use
  Company Number: US-BIOGENIDEC-2008BI002057

PATIENT
  Age: 32 Year
  Sex: Male
  Weight: 92 kg

DRUGS (1)
  1. AVONEX [Suspect]
     Indication: MULTIPLE SCLEROSIS
     Route: 030
     Dates: start: 20080125, end: 20080809

REACTIONS (3)
  - TREMOR [None]
  - PAIN IN EXTREMITY [None]
  - CONVULSION [None]
